FAERS Safety Report 7013845-9 (Version None)
Quarter: 2010Q3

REPORT INFORMATION
  Report Type: 
  Country: None (occurrence: None)
  Receive Date: 20100924
  Receipt Date: 20100915
  Transmission Date: 20110219
  Serious: Yes (Other)
  Sender: FDA-Public Use
  Company Number: GB-ABBOTT-10P-167-0667333-00

PATIENT
  Age: 65 Year
  Sex: Male

DRUGS (9)
  1. PROSTAP 3 [Suspect]
     Indication: PROSTATE CANCER
     Route: 030
     Dates: start: 20100414
  2. PROSTAP 3 [Suspect]
     Route: 058
     Dates: start: 20100712
  3. ASPIRIN [Concomitant]
     Indication: HYPERTENSION
  4. BENDROFLUMETHIAZIDE [Concomitant]
     Indication: HYPERTENSION
  5. CANDESARTAN CILEXETIL [Concomitant]
     Indication: HYPERTENSION
  6. CO-DYDRAMOL [Concomitant]
     Indication: PAIN
  7. FELODIPINE [Concomitant]
     Indication: PRODUCT USED FOR UNKNOWN INDICATION
  8. PERSANTIN [Concomitant]
     Indication: PRODUCT USED FOR UNKNOWN INDICATION
  9. TADALAFIL [Concomitant]
     Indication: ERECTILE DYSFUNCTION

REACTIONS (2)
  - ABDOMINAL ABSCESS [None]
  - INJECTION SITE INFECTION [None]
